FAERS Safety Report 7075554-X (Version None)
Quarter: 2010Q4

REPORT INFORMATION
  Report Type: 
  Country: None (occurrence: None)
  Receive Date: 20101030
  Receipt Date: 20101006
  Transmission Date: 20110411
  Serious: No
  Sender: FDA-Public Use
  Company Number: US-WYE-H18010910

PATIENT
  Age: 85 Year
  Sex: Male
  Weight: 68.55 kg

DRUGS (2)
  1. ADVIL PM [Suspect]
     Indication: INSOMNIA
     Dosage: 2 CAPSULES X 1 ON AN EMPTY STOMACH
     Route: 048
     Dates: start: 20101005, end: 20101005
  2. VITAMINS [Concomitant]

REACTIONS (4)
  - CONDITION AGGRAVATED [None]
  - DRY MOUTH [None]
  - NAUSEA [None]
  - TINNITUS [None]
